FAERS Safety Report 5848017-4 (Version None)
Quarter: 2008Q3

REPORT INFORMATION
  Report Type: 
  Country: None (occurrence: None)
  Receive Date: 20080818
  Receipt Date: 20080813
  Transmission Date: 20090109
  Serious: Yes (Death)
  Sender: FDA-Public Use
  Company Number: IL-JNJFOC-20080803466

PATIENT
  Sex: Female
  Weight: 57 kg

DRUGS (2)
  1. DOXIL [Suspect]
     Indication: MYCOSIS FUNGOIDES
     Route: 042
  2. DEXAMETHASONE TAB [Concomitant]
     Indication: ANTIEMETIC SUPPORTIVE CARE
     Route: 065

REACTIONS (1)
  - DEATH [None]
